FAERS Safety Report 7359492-0 (Version None)
Quarter: 2011Q1

REPORT INFORMATION
  Report Type: 
  Country: None (occurrence: None)
  Receive Date: 20110317
  Receipt Date: 20091123
  Transmission Date: 20110831
  Serious: No
  Sender: FDA-Public Use
  Company Number: US-PFIZER INC-2009295992

PATIENT
  Sex: Male
  Weight: 81.6 kg

DRUGS (3)
  1. LISINOPRIL [Suspect]
     Indication: HYPERTENSION
     Dosage: 5MG/DAY
     Route: 065
     Dates: start: 20090501, end: 20090501
  2. HYDROCHLOROTHIAZIDE [Suspect]
     Indication: HYPERTENSION
     Dosage: 25MG/DAY
     Dates: start: 20090901
  3. NORVASC [Suspect]
     Indication: HYPERTENSION
     Dosage: 5MG/DAY
     Dates: start: 20090501, end: 20090501

REACTIONS (3)
  - POLLAKIURIA [None]
  - DRUG INEFFECTIVE [None]
  - PALPITATIONS [None]
